FAERS Safety Report 19229169 (Version 2)
Quarter: 2021Q2

REPORT INFORMATION
  Report Type: Spontaneous
  Country: DE (occurrence: DE)
  Receive Date: 20210506
  Receipt Date: 20210625
  Transmission Date: 20210717
  Serious: Yes (Death, Other)
  Sender: FDA-Public Use
  Company Number: DE-ALXN-A202105235

PATIENT
  Age: 6 Year
  Sex: Male

DRUGS (6)
  1. SOLIRIS [Suspect]
     Active Substance: ECULIZUMAB
     Indication: AUTOIMMUNE HAEMOLYTIC ANAEMIA
  2. PREDNISOLONE. [Concomitant]
     Active Substance: PREDNISOLONE
     Indication: IMMUNE THROMBOCYTOPENIA
     Dosage: 2 MG/KG/DAY
     Route: 065
  3. RITUXIMAB. [Concomitant]
     Active Substance: RITUXIMAB
     Indication: IMMUNE THROMBOCYTOPENIA
     Dosage: 375 MG/M2/DOSE, A TOTAL OF WEEKLY 6 DOSES
     Route: 065
  4. SOLIRIS [Suspect]
     Active Substance: ECULIZUMAB
     Indication: OFF LABEL USE
  5. CYCLOSPORIN A [Concomitant]
     Active Substance: CYCLOSPORINE
     Indication: PROPHYLAXIS AGAINST GRAFT VERSUS HOST DISEASE
     Route: 065
  6. SOLIRIS [Suspect]
     Active Substance: ECULIZUMAB
     Indication: IMMUNE THROMBOCYTOPENIA
     Dosage: 25 MG/KG
     Route: 065

REACTIONS (4)
  - Off label use [Unknown]
  - Refractory cytopenia with unilineage dysplasia [Fatal]
  - Cardiac failure acute [Fatal]
  - Pulmonary embolism [Fatal]
